FAERS Safety Report 21105371 (Version 1)
Quarter: 2022Q3

REPORT INFORMATION
  Report Type: Spontaneous
  Country: AR (occurrence: AR)
  Receive Date: 20220720
  Receipt Date: 20220720
  Transmission Date: 20221027
  Serious: Yes (Other)
  Sender: FDA-Public Use
  Company Number: AR-PFIZER INC-PV202200022988

PATIENT
  Age: 22 Month
  Sex: Female

DRUGS (1)
  1. GENOTROPIN [Suspect]
     Active Substance: SOMATROPIN
     Indication: Growth hormone deficiency
     Dosage: 0.1 TO 0.5 MG, 6 TIMES PER WEEK
     Dates: start: 20210128

REACTIONS (3)
  - Syncope [Unknown]
  - Cyanosis [Unknown]
  - Malaise [Not Recovered/Not Resolved]
